FAERS Safety Report 14187177 (Version 1)
Quarter: 2017Q4

REPORT INFORMATION
  Report Type: Report from Study
  Country: FR (occurrence: FR)
  Receive Date: 20171114
  Receipt Date: 20171114
  Transmission Date: 20180321
  Serious: Yes (Hospitalization, Other)
  Sender: FDA-Public Use
  Company Number: FR-BRISTOL-MYERS SQUIBB COMPANY-BMS-2016-024396

PATIENT
  Age: 50 Year
  Sex: Male
  Weight: 67 kg

DRUGS (7)
  1. ENTECAVIR. [Suspect]
     Active Substance: ENTECAVIR
     Indication: HEPATITIS B
     Dosage: 0.5 MG, QD
     Route: 065
     Dates: start: 2010
  2. ADVAGRAF [Concomitant]
     Active Substance: TACROLIMUS
     Indication: IMMUNOSUPPRESSION
     Dosage: 2.5 MG, QD
     Route: 065
     Dates: start: 20111019
  3. AVLOCARDYL                         /00030001/ [Concomitant]
     Active Substance: PROPRANOLOL HYDROCHLORIDE
     Indication: PRODUCT USED FOR UNKNOWN INDICATION
     Dosage: 1 DF, BID HALF TAB
     Route: 065
     Dates: start: 201205
  4. CELLCEPT [Concomitant]
     Active Substance: MYCOPHENOLATE MOFETIL\MYCOPHENOLATE MOFETIL HYDROCHLORIDE
     Indication: PRODUCT USED FOR UNKNOWN INDICATION
     Dosage: 1 G, BID
     Route: 065
     Dates: start: 20111019
  5. PARIET [Concomitant]
     Active Substance: RABEPRAZOLE SODIUM
     Indication: PRODUCT USED FOR UNKNOWN INDICATION
     Dosage: 20 MG, BID
     Route: 065
     Dates: start: 20120710
  6. MAGNE B6 [Concomitant]
     Active Substance: MAGNESIUM\PYRIDOXINE
     Indication: MAGNESIUM DEFICIENCY
     Dosage: 1 TAB, QD
     Route: 065
     Dates: start: 20120710
  7. ASPEGIC [Concomitant]
     Active Substance: ASPIRIN DL-LYSINE
     Indication: ANTICOAGULANT THERAPY
     Dosage: 250 MG, QD
     Route: 065
     Dates: start: 20111019

REACTIONS (15)
  - Hypotension [Recovering/Resolving]
  - Oesophageal varices haemorrhage [Unknown]
  - Systemic inflammatory response syndrome [Unknown]
  - Thrombocytopenia [Unknown]
  - Hepatocellular carcinoma [Unknown]
  - Neutropenia [Unknown]
  - Cholestasis [Unknown]
  - Cell death [Unknown]
  - Inguinal hernia [Unknown]
  - Bile duct stenosis [Unknown]
  - Biliary anastomosis [Recovered/Resolved with Sequelae]
  - Lipoma [Unknown]
  - Interstitial lung disease [Unknown]
  - Intestinal anastomosis [Recovered/Resolved with Sequelae]
  - Escherichia sepsis [Recovering/Resolving]

NARRATIVE: CASE EVENT DATE: 201208
